FAERS Safety Report 4316136-X (Version None)
Quarter: 2004Q1

REPORT INFORMATION
  Report Type: 
  Country: None (occurrence: None)
  Receive Date: 20040310
  Receipt Date: 20040224
  Transmission Date: 20041129
  Serious: Yes (Hospitalization)
  Sender: FDA-Public Use
  Company Number: 2004-113060-NL

PATIENT
  Age: 82 Year
  Sex: Female

DRUGS (3)
  1. DANAPAROID SODIUM [Suspect]
     Dosage: SEE IMAGE
     Route: 058
     Dates: start: 20031118
  2. HEPARIN-FRACTION [Concomitant]
  3. SODIUM SALT [Concomitant]

REACTIONS (3)
  - ATROPHY [None]
  - BRONCHOPNEUMONIA [None]
  - MELAENA [None]
